FAERS Safety Report 6010259-5 (Version None)
Quarter: 2008Q4

REPORT INFORMATION
  Report Type: 
  Country: None (occurrence: None)
  Receive Date: 20081218
  Receipt Date: 20080314
  Transmission Date: 20090506
  Serious: No
  Sender: FDA-Public Use
  Company Number: A0714070A

PATIENT
  Age: 53 Year
  Sex: Female

DRUGS (3)
  1. FLONASE [Suspect]
     Dosage: 1SPR PER DAY
     Route: 045
     Dates: start: 19950101
  2. FLUTICASONE PROPIONATE [Suspect]
     Dosage: 1SPR TWICE PER DAY
     Route: 045
     Dates: start: 20060101
  3. NO CONCURRENT MEDICATION [Concomitant]

REACTIONS (2)
  - NASAL DISCOMFORT [None]
  - NASAL DRYNESS [None]
